FAERS Safety Report 8111017-8 (Version None)
Quarter: 2012Q1

REPORT INFORMATION
  Report Type: 
  Country: None (occurrence: None)
  Receive Date: 20120203
  Receipt Date: 20110215
  Transmission Date: 20120608
  Serious: No
  Sender: FDA-Public Use
  Company Number: US-GLAXOSMITHKLINE-A0913779A

PATIENT
  Age: 33 Year
  Sex: Female

DRUGS (3)
  1. PROZAC [Concomitant]
  2. VALIUM [Concomitant]
  3. LAMICTAL [Suspect]
     Indication: PRODUCT USED FOR UNKNOWN INDICATION
     Dosage: 50MG PER DAY
     Route: 048
     Dates: start: 20110125

REACTIONS (4)
  - FEELING ABNORMAL [None]
  - VISION BLURRED [None]
  - SOMNOLENCE [None]
  - DEPRESSION [None]
